FAERS Safety Report 16625422 (Version 2)
Quarter: 2019Q3

REPORT INFORMATION
  Report Type: Spontaneous
  Country: US (occurrence: US)
  Receive Date: 20190724
  Receipt Date: 20190910
  Transmission Date: 20191004
  Serious: No
  Sender: FDA-Public Use
  Company Number: US-PFIZER INC-2019315580

PATIENT
  Age: 60 Year
  Sex: Female
  Weight: 90.7 kg

DRUGS (4)
  1. GABAPENTIN. [Concomitant]
     Active Substance: GABAPENTIN
     Dosage: UNK
  2. CELEBREX [Suspect]
     Active Substance: CELECOXIB
     Dosage: UNK
  3. KEPPRA [Concomitant]
     Active Substance: LEVETIRACETAM
     Dosage: UNK
  4. XANAX [Concomitant]
     Active Substance: ALPRAZOLAM
     Indication: ANXIETY
     Dosage: UNK

REACTIONS (2)
  - Drug hypersensitivity [Unknown]
  - Hypertension [Unknown]
